FAERS Safety Report 24626672 (Version 4)
Quarter: 2025Q2

REPORT INFORMATION
  Report Type: Spontaneous
  Country: JP (occurrence: JP)
  Receive Date: 20241115
  Receipt Date: 20250403
  Transmission Date: 20250716
  Serious: Yes (Other)
  Sender: JAZZ
  Company Number: JP-JAZZ PHARMACEUTICALS-2024-JP-021247

PATIENT
  Age: 68 Year
  Sex: Male
  Weight: 64 kg

DRUGS (6)
  1. VYXEOS [Suspect]
     Active Substance: CYTARABINE\DAUNORUBICIN
     Indication: Acute myeloid leukaemia
     Route: 042
     Dates: start: 20241001, end: 20241005
  2. AZACITIDINE [Suspect]
     Active Substance: AZACITIDINE
     Indication: Chronic myelomonocytic leukaemia
     Route: 042
     Dates: start: 2024, end: 202408
  3. NOXAFIL [Concomitant]
     Active Substance: POSACONAZOLE
     Indication: Product used for unknown indication
     Dates: start: 2024, end: 2024
  4. VENETOCLAX [Concomitant]
     Active Substance: VENETOCLAX
     Indication: Chronic myelomonocytic leukaemia
     Dates: start: 2024, end: 2024
  5. VENETOCLAX [Concomitant]
     Active Substance: VENETOCLAX
     Dates: start: 2024, end: 2024
  6. VENETOCLAX [Concomitant]
     Active Substance: VENETOCLAX
     Dates: start: 2024, end: 2024

REACTIONS (8)
  - Pulmonary alveolar haemorrhage [Recovered/Resolved]
  - Platelet count decreased [Unknown]
  - Transformation to acute myeloid leukaemia [Unknown]
  - Febrile neutropenia [Unknown]
  - Febrile neutropenia [Recovered/Resolved]
  - Septic shock [Recovered/Resolved]
  - Bacillus infection [Recovered/Resolved]
  - Atrial fibrillation [Unknown]

NARRATIVE: CASE EVENT DATE: 20240101
